FAERS Safety Report 15308881 (Version 1)
Quarter: 2018Q3

REPORT INFORMATION
  Report Type: Other
  Country: PL (occurrence: PL)
  Receive Date: 20180823
  Receipt Date: 20180823
  Transmission Date: 20181010
  Serious: Yes (Hospitalization)
  Sender: FDA-Public Use
  Company Number: PL-MERCK KGAA-2054115

PATIENT
  Age: 33 Year
  Sex: Female

DRUGS (6)
  1. METHYLDOPA. [Suspect]
     Active Substance: METHYLDOPA
  2. PRAVASTATIN. [Suspect]
     Active Substance: PRAVASTATIN
  3. ENOXAPARIN [Suspect]
     Active Substance: ENOXAPARIN
  4. ACETYLSALICYLIC ACID [Suspect]
     Active Substance: ASPIRIN
  5. NOVOTHYROX [Suspect]
     Active Substance: LEVOTHYROXINE SODIUM
     Indication: PRODUCT USED FOR UNKNOWN INDICATION
  6. METFORMIN [Suspect]
     Active Substance: METFORMIN HYDROCHLORIDE

REACTIONS (5)
  - Cervical incompetence [Recovered/Resolved]
  - Amniotic fluid volume decreased [Recovered/Resolved]
  - Exposure during pregnancy [Recovered/Resolved]
  - Premature delivery [Recovered/Resolved]
  - Live birth [Recovered/Resolved]
